FAERS Safety Report 9496971 (Version 1)
Quarter: 2013Q3

REPORT INFORMATION
  Report Type: Spontaneous
  Country: CN (occurrence: CN)
  Receive Date: 20130904
  Receipt Date: 20130904
  Transmission Date: 20140515
  Serious: Yes (Hospitalization)
  Sender: FDA-Public Use
  Company Number: CN-JNJFOC-20130815732

PATIENT
  Age: 39 Year
  Sex: Female

DRUGS (9)
  1. DAKTARIN [Suspect]
     Indication: NODULE
     Route: 061
  2. DAKTARIN [Suspect]
     Indication: PAPULE
     Route: 061
  3. DAKTARIN [Suspect]
     Indication: ERYTHEMA
     Route: 061
  4. DAKTARIN [Suspect]
     Indication: ERYTHEMA
     Route: 061
  5. SPORANOX [Suspect]
     Indication: FUNGAL INFECTION
     Route: 048
     Dates: start: 201210
  6. DEXAMETHASONE ACETATE [Suspect]
     Indication: NODULE
     Route: 002
  7. DEXAMETHASONE ACETATE [Suspect]
     Indication: PAPULE
     Route: 002
  8. DEXAMETHASONE ACETATE [Suspect]
     Indication: ERYTHEMA
     Route: 002
  9. DEXAMETHASONE ACETATE [Suspect]
     Indication: ERYTHEMA
     Route: 002

REACTIONS (2)
  - Rhinosporidiosis [Unknown]
  - Drug ineffective [Unknown]
